FAERS Safety Report 5930337-6 (Version None)
Quarter: 2008Q4

REPORT INFORMATION
  Report Type: 
  Country: None (occurrence: None)
  Receive Date: 20081023
  Receipt Date: 20081008
  Transmission Date: 20090506
  Serious: Yes (Hospitalization)
  Sender: FDA-Public Use
  Company Number: CIP08001980

PATIENT
  Sex: Female

DRUGS (1)
  1. ACTONEL COMBI (RISEDRONATE SODIUM 35 MG, CALCIUM CARBONATE 1250 MG) TA [Suspect]
     Dosage: 1 TABLET, CYCLIC 1/D, ORAL
     Route: 048
     Dates: start: 20070223, end: 20080401

REACTIONS (2)
  - MALAISE [None]
  - THROMBOSIS [None]
